FAERS Safety Report 6041939-3 (Version None)
Quarter: 2009Q1

REPORT INFORMATION
  Report Type: 
  Country: None (occurrence: None)
  Receive Date: 20090116
  Receipt Date: 20090105
  Transmission Date: 20090719
  Serious: Yes (Other)
  Sender: FDA-Public Use
  Company Number: BR-ROCHE-606553

PATIENT
  Age: 35 Year
  Sex: Male
  Weight: 76 kg

DRUGS (4)
  1. RIVOTRIL [Suspect]
     Indication: ANXIETY
     Dosage: OTHER INDICATION: PANIC DISORDER.
     Route: 048
     Dates: start: 20050101
  2. RIVOTRIL [Suspect]
     Dosage: INTERRUPTED FOR 3-4 DAYS.
     Route: 048
  3. CLOMIPRAMINE [Suspect]
     Indication: DRUG USE FOR UNKNOWN INDICATION
     Route: 065
     Dates: start: 20050101
  4. AMITRIPTYLINE HCL [Concomitant]
     Route: 048

REACTIONS (11)
  - CHOLELITHIASIS [None]
  - CRYING [None]
  - DEPENDENCE [None]
  - DEPRESSION [None]
  - HEPATOSPLENOMEGALY [None]
  - MAJOR DEPRESSION [None]
  - PSYCHOTIC DISORDER [None]
  - SLEEP DISORDER [None]
  - SUICIDAL IDEATION [None]
  - THERAPEUTIC RESPONSE DECREASED [None]
  - WEIGHT INCREASED [None]
